FAERS Safety Report 5210341-6 (Version None)
Quarter: 2007Q1

REPORT INFORMATION
  Report Type: 
  Country: None (occurrence: None)
  Receive Date: 20070117
  Receipt Date: 20070112
  Transmission Date: 20070707
  Serious: Yes (Death, Hospitalization)
  Sender: FDA-Public Use
  Company Number: 2007UW00692

PATIENT
  Sex: Female

DRUGS (1)
  1. FASLODEX [Suspect]
     Dosage: 250MG/ML
     Route: 030
     Dates: start: 20051020, end: 20060803

REACTIONS (2)
  - GASTROINTESTINAL INFECTION [None]
  - SEPSIS [None]
